FAERS Safety Report 10976384 (Version 2)
Quarter: 2015Q2

REPORT INFORMATION
  Report Type: Spontaneous
  Country: US (occurrence: US)
  Receive Date: 20150401
  Receipt Date: 20150525
  Transmission Date: 20150821
  Serious: No
  Sender: FDA-Public Use
  Company Number: US-JNJFOC-20130717431

PATIENT
  Age: 46 Year
  Sex: Male
  Weight: 72.58 kg

DRUGS (2)
  1. BENZOTROPINE [Suspect]
     Active Substance: BENZTROPINE
     Indication: PRODUCT USED FOR UNKNOWN INDICATION
     Route: 048
     Dates: start: 201305
  2. RISPERIDAL [Suspect]
     Active Substance: RISPERIDONE
     Indication: OBSESSIVE THOUGHTS
     Route: 048
     Dates: start: 201305, end: 20130531

REACTIONS (2)
  - Headache [Recovered/Resolved]
  - Product use issue [Unknown]

NARRATIVE: CASE EVENT DATE: 201305
